FAERS Safety Report 21801867 (Version 1)
Quarter: 2022Q4

REPORT INFORMATION
  Report Type: Spontaneous
  Country: JP (occurrence: JP)
  Receive Date: 20221230
  Receipt Date: 20221230
  Transmission Date: 20230112
  Serious: Yes (Hospitalization, Other)
  Sender: FDA-Public Use
  Company Number: JP-TAKEDA-2022TJP078795

PATIENT
  Age: 69 Year
  Sex: Female
  Weight: 45.9 kg

DRUGS (19)
  1. NINLARO [Suspect]
     Active Substance: IXAZOMIB CITRATE
     Indication: Plasma cell myeloma
     Dosage: 3 MILLIGRAM, 1/WEEK
     Route: 048
     Dates: start: 20171209, end: 20180118
  2. NINLARO [Suspect]
     Active Substance: IXAZOMIB CITRATE
     Dosage: 3 MILLIGRAM, 1/WEEK
     Route: 048
     Dates: start: 20221121, end: 20221128
  3. LENADEX [Suspect]
     Active Substance: DEXAMETHASONE ACETATE
     Indication: Product used for unknown indication
     Dosage: UNK
     Route: 048
     Dates: start: 201402
  4. LENADEX [Suspect]
     Active Substance: DEXAMETHASONE ACETATE
     Dosage: UNK
     Route: 048
     Dates: start: 201409
  5. LENADEX [Suspect]
     Active Substance: DEXAMETHASONE ACETATE
     Dosage: UNK
     Route: 048
     Dates: start: 201503
  6. LENADEX [Suspect]
     Active Substance: DEXAMETHASONE ACETATE
     Dosage: UNK
     Route: 048
     Dates: start: 201702
  7. LENADEX [Suspect]
     Active Substance: DEXAMETHASONE ACETATE
     Dosage: 20 MILLIGRAM, 1/WEEK
     Route: 048
     Dates: start: 20171209, end: 20180118
  8. AZILSARTAN KAMEDOXOMIL [Concomitant]
     Active Substance: AZILSARTAN KAMEDOXOMIL
     Indication: Hypertension
     Dosage: 40 MILLIGRAM, QD
     Route: 048
  9. RAMOSETRON HYDROCHLORIDE [Concomitant]
     Active Substance: RAMOSETRON HYDROCHLORIDE
     Indication: Prophylaxis of nausea and vomiting
     Dosage: 0.1 MILLIGRAM, QD
     Route: 048
     Dates: start: 20171209, end: 20180118
  10. RAMOSETRON HYDROCHLORIDE [Concomitant]
     Active Substance: RAMOSETRON HYDROCHLORIDE
     Dosage: 0.1 MILLIGRAM, QD
     Route: 048
     Dates: start: 20221121, end: 20221201
  11. LOPEMIN [Concomitant]
     Indication: Diarrhoea
     Dosage: 1 MILLIGRAM, BID
     Route: 048
     Dates: start: 20180104, end: 20180118
  12. LOPEMIN [Concomitant]
     Dosage: 1 MILLIGRAM, BID
     Route: 048
     Dates: start: 20221121, end: 20221201
  13. CARVEDILOL [Concomitant]
     Active Substance: CARVEDILOL
     Indication: Hypertension
     Dosage: 7.5 MILLIGRAM, QD
     Route: 048
  14. FUROSEMIDE [Concomitant]
     Active Substance: FUROSEMIDE
     Indication: Product used for unknown indication
     Dosage: 40 MILLIGRAM, QD
     Route: 048
  15. RABEPRAZOLE SODIUM [Concomitant]
     Active Substance: RABEPRAZOLE SODIUM
     Indication: Product used for unknown indication
     Dosage: 10 MILLIGRAM, QD
     Route: 048
  16. NIFEDIPINE [Concomitant]
     Active Substance: NIFEDIPINE
     Indication: Hypertension
     Dosage: 40 MILLIGRAM, QD
     Route: 048
  17. METHYLCOBALAMIN [Concomitant]
     Active Substance: METHYLCOBALAMIN
     Indication: Vitamin supplementation
     Dosage: 500 MICROGRAM, TID
     Route: 048
  18. TEPRENONE [Concomitant]
     Active Substance: TEPRENONE
     Indication: Product used for unknown indication
     Dosage: 50 MILLIGRAM, TID
     Route: 048
  19. FERRIC CITRATE ANHYDROUS [Concomitant]
     Active Substance: FERRIC CITRATE ANHYDROUS
     Indication: Hyperphosphataemia
     Dosage: 500 MILLIGRAM, TID
     Route: 048

REACTIONS (7)
  - Disseminated intravascular coagulation [Recovering/Resolving]
  - Shunt occlusion [Recovered/Resolved with Sequelae]
  - Syncope [Recovering/Resolving]
  - Gastroenteritis bacterial [Recovered/Resolved]
  - Sepsis [Recovered/Resolved]
  - Shunt occlusion [Unknown]
  - Product use issue [Unknown]

NARRATIVE: CASE EVENT DATE: 20171209
